FAERS Safety Report 5384985-5 (Version None)
Quarter: 2007Q3

REPORT INFORMATION
  Report Type: 
  Country: None (occurrence: None)
  Receive Date: 20070709
  Receipt Date: 20070322
  Transmission Date: 20080115
  Serious: Yes (Other)
  Sender: FDA-Public Use
  Company Number: US-JNJFOC-20070305573

PATIENT
  Age: 15 Month
  Sex: Female
  Weight: 8.6183 kg

DRUGS (2)
  1. MOTRIN [Suspect]
     Indication: PYREXIA
     Dosage: 75 MG, 2 IN 1 DAY
     Dates: start: 20070321
  2. MOTRIN [Suspect]
     Indication: PYREXIA
     Dosage: 75 MG, 2 IN 1 DAY
     Dates: start: 20070322

REACTIONS (1)
  - WHEEZING [None]
